FAERS Safety Report 14816378 (Version 2)
Quarter: 2018Q2

REPORT INFORMATION
  Report Type: Report from Study
  Country: ES (occurrence: ES)
  Receive Date: 20180426
  Receipt Date: 20180628
  Transmission Date: 20180711
  Serious: Yes (Hospitalization, Other)
  Sender: FDA-Public Use
  Company Number: ES-SA-2018SA117547

PATIENT
  Age: 28 Year
  Sex: Female
  Weight: 55.2 kg

DRUGS (19)
  1. NOVORAPID [Suspect]
     Active Substance: INSULIN ASPART
     Dosage: 25 IU,QD
     Route: 058
     Dates: start: 20180305
  2. FERPLEX [Concomitant]
     Indication: ANAEMIA
     Dosage: UNK UNK,UNK
     Route: 065
     Dates: start: 20171214, end: 20180312
  3. INSULIN GLARGINE [Suspect]
     Active Substance: INSULIN GLARGINE
     Indication: TYPE 1 DIABETES MELLITUS
     Dosage: 12 IU, QD
     Route: 058
     Dates: start: 20160526
  4. INSULIN GLARGINE [Suspect]
     Active Substance: INSULIN GLARGINE
     Dosage: 15 IU, QD
     Route: 058
     Dates: start: 20180331
  5. INSULIN GLARGINE [Suspect]
     Active Substance: INSULIN GLARGINE
     Dosage: 12 IU, QD
     Route: 058
     Dates: start: 20180404
  6. PROGYLUTON [Concomitant]
     Indication: PREGNANCY
     Dosage: UNK UNK,UNK
     Route: 065
     Dates: start: 20171211, end: 20180118
  7. INSULIN GLARGINE [Suspect]
     Active Substance: INSULIN GLARGINE
     Dosage: 15 IU, QD
     Route: 058
     Dates: start: 20080401, end: 20180403
  8. INSULIN GLARGINE [Suspect]
     Active Substance: INSULIN GLARGINE
     Dosage: 11 IU, QD
     Route: 058
     Dates: start: 20180515
  9. NOVORAPID [Suspect]
     Active Substance: INSULIN ASPART
     Indication: TYPE 1 DIABETES MELLITUS
     Dosage: 32 IU,QD
     Route: 058
     Dates: start: 20160526
  10. NOVORAPID [Suspect]
     Active Substance: INSULIN ASPART
     Dosage: 28 IU,QD
     Route: 058
     Dates: start: 20180401, end: 20180403
  11. ACFOL [Concomitant]
     Active Substance: FOLIC ACID
     Indication: PROPHYLAXIS
     Dosage: UNK UNK,UNK
     Route: 065
     Dates: start: 20171214
  12. INSULIN GLARGINE [Suspect]
     Active Substance: INSULIN GLARGINE
     Dosage: 12 IU, QD
     Route: 058
     Dates: start: 20180205
  13. INSULIN GLARGINE [Suspect]
     Active Substance: INSULIN GLARGINE
     Dosage: 14 IU, QD
     Route: 058
     Dates: start: 20180305
  14. NOVORAPID [Suspect]
     Active Substance: INSULIN ASPART
     Dosage: 28 IU,QD
     Route: 058
     Dates: start: 20180331
  15. NOVORAPID [Suspect]
     Active Substance: INSULIN ASPART
     Dosage: 51 IU, QD
     Route: 058
     Dates: start: 20180430
  16. NOVORAPID [Suspect]
     Active Substance: INSULIN ASPART
     Dosage: 22 IU,QD
     Route: 058
     Dates: start: 20180205
  17. INSULIN GLARGINE [Suspect]
     Active Substance: INSULIN GLARGINE
     Dosage: 14 IU, QD
     Route: 058
     Dates: start: 20180430
  18. NOVORAPID [Suspect]
     Active Substance: INSULIN ASPART
     Dosage: 52 IU, QD
     Route: 058
     Dates: start: 20180515
  19. NOVORAPID [Suspect]
     Active Substance: INSULIN ASPART
     Dosage: 21 IU,QD
     Route: 058
     Dates: start: 20180404

REACTIONS (4)
  - Hypoglycaemia [Recovered/Resolved]
  - Exposure during pregnancy [Unknown]
  - Hyperemesis gravidarum [Recovering/Resolving]
  - Oesophagitis [Recovering/Resolving]

NARRATIVE: CASE EVENT DATE: 20171106
